FAERS Safety Report 6055562-8 (Version None)
Quarter: 2009Q1

REPORT INFORMATION
  Report Type: 
  Country: None (occurrence: None)
  Receive Date: 20090123
  Receipt Date: 20090112
  Transmission Date: 20090719
  Serious: Yes (Disabling)
  Sender: FDA-Public Use
  Company Number: OSCN-PR-0901S-0015

PATIENT
  Sex: Female

DRUGS (7)
  1. OMNISCAN [Suspect]
     Indication: DRUG USE FOR UNKNOWN INDICATION
     Dosage: NR, SINGLE DOSE, NR, SINGLE DOSE, NR, SINGLE DOSE, NR, SINGLE DOSE, NR, SINGLE DOSE, NR, SINGLE DOSE
     Dates: start: 20000522, end: 20000522
  2. OMNISCAN [Suspect]
     Indication: DRUG USE FOR UNKNOWN INDICATION
     Dosage: NR, SINGLE DOSE, NR, SINGLE DOSE, NR, SINGLE DOSE, NR, SINGLE DOSE, NR, SINGLE DOSE, NR, SINGLE DOSE
     Dates: start: 20000808, end: 20000808
  3. OMNISCAN [Suspect]
     Indication: DRUG USE FOR UNKNOWN INDICATION
     Dosage: NR, SINGLE DOSE, NR, SINGLE DOSE, NR, SINGLE DOSE, NR, SINGLE DOSE, NR, SINGLE DOSE, NR, SINGLE DOSE
     Dates: start: 20010227, end: 20010227
  4. OMNISCAN [Suspect]
     Indication: DRUG USE FOR UNKNOWN INDICATION
     Dosage: NR, SINGLE DOSE, NR, SINGLE DOSE, NR, SINGLE DOSE, NR, SINGLE DOSE, NR, SINGLE DOSE, NR, SINGLE DOSE
     Dates: start: 20010521, end: 20010521
  5. OMNISCAN [Suspect]
     Indication: DRUG USE FOR UNKNOWN INDICATION
     Dosage: NR, SINGLE DOSE, NR, SINGLE DOSE, NR, SINGLE DOSE, NR, SINGLE DOSE, NR, SINGLE DOSE, NR, SINGLE DOSE
     Dates: start: 20010731, end: 20010731
  6. OMNISCAN [Suspect]
     Indication: DRUG USE FOR UNKNOWN INDICATION
     Dosage: NR, SINGLE DOSE, NR, SINGLE DOSE, NR, SINGLE DOSE, NR, SINGLE DOSE, NR, SINGLE DOSE, NR, SINGLE DOSE
     Dates: start: 20031110, end: 20031110
  7. GADOPENTETATE DIMEGLUMINE (MAGNEVIST) [Concomitant]

REACTIONS (1)
  - NEPHROGENIC SYSTEMIC FIBROSIS [None]
